FAERS Safety Report 8118327-9 (Version None)
Quarter: 2012Q1

REPORT INFORMATION
  Report Type: 
  Country: None (occurrence: None)
  Receive Date: 20120207
  Receipt Date: 20120201
  Transmission Date: 20120608
  Serious: Yes (Other)
  Sender: FDA-Public Use
  Company Number: US-PFIZER INC-2012029172

PATIENT

DRUGS (1)
  1. PROCARDIA [Suspect]
     Dosage: UNK
     Dates: start: 19960101

REACTIONS (3)
  - SCIATICA [None]
  - HYPERTENSION [None]
  - GLAUCOMA SURGERY [None]
